FAERS Safety Report 24114421 (Version 1)
Quarter: 2024Q3

REPORT INFORMATION
  Report Type: Report from Study
  Country: TR (occurrence: TR)
  Receive Date: 20240720
  Receipt Date: 20240720
  Transmission Date: 20241016
  Serious: Yes (Hospitalization, Other)
  Sender: RANBAXY
  Company Number: TR-SUN PHARMACEUTICAL INDUSTRIES LTD-2024R1-457954

PATIENT
  Age: 57 Year
  Sex: Male
  Weight: 72 kg

DRUGS (11)
  1. CAPECITABINE [Suspect]
     Active Substance: CAPECITABINE
     Indication: Adenocarcinoma gastric
     Dosage: 500 MILLIGRAM, BID
     Route: 048
     Dates: start: 20240605, end: 20240702
  2. CAPECITABINE [Suspect]
     Active Substance: CAPECITABINE
     Dosage: 150 MILLIGRAM, BID
     Route: 048
     Dates: start: 20240605
  3. CAPECITABINE [Suspect]
     Active Substance: CAPECITABINE
     Dosage: 750 MILLIGRAM, BID
     Route: 048
     Dates: start: 20240704
  4. LOPERAMIDE [Suspect]
     Active Substance: LOPERAMIDE
     Indication: Adenocarcinoma gastric
     Dosage: 4 MILLIGRAM, BID
     Route: 048
     Dates: start: 20240605, end: 20240702
  5. OXALIPLATIN [Suspect]
     Active Substance: OXALIPLATIN
     Indication: Adenocarcinoma gastric
     Dosage: 250 MILLIGRAM, EVERY 3 WEEKS
     Route: 042
     Dates: start: 20240605
  6. OXALIPLATIN [Suspect]
     Active Substance: OXALIPLATIN
     Dosage: 185 MILLIGRAM
     Route: 042
     Dates: start: 20240704
  7. ZANIDATAMAB [Suspect]
     Active Substance: ZANIDATAMAB
     Indication: Adenocarcinoma gastric
     Dosage: 2400 MILLIGRAM, Q3W
     Route: 042
     Dates: start: 20240605, end: 20240626
  8. ZANIDATAMAB [Suspect]
     Active Substance: ZANIDATAMAB
     Dosage: 1800 MILLIGRAM
     Route: 042
     Dates: start: 20240704
  9. ATORVASTATIN CALCIUM [Concomitant]
     Active Substance: ATORVASTATIN CALCIUM
     Indication: Coronary artery disease
     Dosage: UNK
     Route: 065
     Dates: start: 2021
  10. BELOC [Concomitant]
     Indication: Product used for unknown indication
     Dosage: 25 MILLIGRAM
     Route: 065
     Dates: start: 202110
  11. ENOXAPARIN SODIUM [Concomitant]
     Active Substance: ENOXAPARIN SODIUM
     Indication: Product used for unknown indication
     Dosage: UNK
     Route: 065
     Dates: start: 20240515

REACTIONS (2)
  - Diarrhoea [Recovered/Resolved]
  - Vomiting [Recovered/Resolved]

NARRATIVE: CASE EVENT DATE: 20240702
